FAERS Safety Report 5315146-3 (Version None)
Quarter: 2007Q2

REPORT INFORMATION
  Report Type: 
  Country: None (occurrence: None)
  Receive Date: 20070502
  Receipt Date: 20070420
  Transmission Date: 20071010
  Serious: Yes (Hospitalization, Other)
  Sender: FDA-Public Use
  Company Number: US-PFIZER INC-2007005017

PATIENT
  Sex: Female

DRUGS (2)
  1. NEURONTIN [Suspect]
     Indication: MIGRAINE
  2. RISPERDAL [Suspect]

REACTIONS (7)
  - BRAIN DAMAGE [None]
  - CONFUSIONAL STATE [None]
  - DRUG INEFFECTIVE [None]
  - HEADACHE [None]
  - INTENTIONAL OVERDOSE [None]
  - SUICIDE ATTEMPT [None]
  - UNRESPONSIVE TO STIMULI [None]
